FAERS Safety Report 21056346 (Version 1)
Quarter: 2022Q3

REPORT INFORMATION
  Report Type: Spontaneous
  Country: GB (occurrence: GR)
  Receive Date: 20220708
  Receipt Date: 20220708
  Transmission Date: 20221027
  Serious: Yes (Hospitalization)
  Sender: FDA-Public Use
  Company Number: GB-ORGANON-O2207GRC000085

PATIENT

DRUGS (5)
  1. MIRTAZAPINE [Suspect]
     Active Substance: MIRTAZAPINE
     Indication: Major depression
     Dosage: 30 MG/DAY
     Route: 048
  2. AMISULPRIDE [Suspect]
     Active Substance: AMISULPRIDE
     Indication: Major depression
     Dosage: 100MG/DAY
  3. VENLAFAXINE [Suspect]
     Active Substance: VENLAFAXINE HYDROCHLORIDE
     Indication: Major depression
     Dosage: 75 MG/DAY
  4. FERROUS SULFATE [Suspect]
     Active Substance: FERROUS SULFATE
     Indication: Major depression
     Dosage: UNK
  5. NIFEDIPINE [Suspect]
     Active Substance: NIFEDIPINE
     Indication: Major depression
     Dosage: 40 MG/DAY

REACTIONS (1)
  - Parkinsonism [Recovered/Resolved]
